FAERS Safety Report 5897497-7 (Version None)
Quarter: 2008Q3

REPORT INFORMATION
  Report Type: 
  Country: None (occurrence: None)
  Receive Date: 20080924
  Receipt Date: 20080924
  Transmission Date: 20090109
  Serious: No
  Sender: FDA-Public Use
  Company Number: None

PATIENT
  Age: 47 Year
  Sex: Female

DRUGS (5)
  1. BACTRIM DS [Suspect]
     Dates: start: 20071117, end: 20071118
  2. CIPROFLOXACIN [Suspect]
     Dates: start: 20071115, end: 20071116
  3. DEPRO-PROVERA [Concomitant]
  4. SYNTHROID [Concomitant]
  5. BENZAMYCIN [Concomitant]

REACTIONS (6)
  - ACUTE HEPATIC FAILURE [None]
  - FALL [None]
  - HEPATIC CIRRHOSIS [None]
  - HEPATIC NECROSIS [None]
  - HEPATITIS VIRAL [None]
  - LIVER INJURY [None]
